FAERS Safety Report 8538025-7 (Version None)
Quarter: 2012Q3

REPORT INFORMATION
  Report Type: 
  Country: None (occurrence: None)
  Receive Date: 20120725
  Receipt Date: 20120112
  Transmission Date: 20120928
  Serious: Yes (Death)
  Sender: FDA-Public Use
  Company Number: US-ROCHE-1086798

PATIENT
  Age: 64 Year
  Sex: Male

DRUGS (2)
  1. ACTIVASE [Suspect]
  2. ACTIVASE [Suspect]
     Indication: ACUTE MYOCARDIAL INFARCTION

REACTIONS (5)
  - VENTRICULAR FIBRILLATION [None]
  - DEATH [None]
  - BRADYCARDIA [None]
  - VENTRICULAR TACHYCARDIA [None]
  - DYSURIA [None]
